FAERS Safety Report 8586100-3 (Version None)
Quarter: 2012Q3

REPORT INFORMATION
  Report Type: 
  Country: None (occurrence: None)
  Receive Date: 20120810
  Receipt Date: 20120727
  Transmission Date: 20120928
  Serious: Yes (Other)
  Sender: FDA-Public Use
  Company Number: JP-ROCHE-1086452

PATIENT
  Sex: Male
  Weight: 68 kg

DRUGS (13)
  1. LASIX [Concomitant]
     Route: 048
     Dates: start: 20120430
  2. D-ALFA [Concomitant]
     Route: 048
     Dates: start: 20030709
  3. REBAMIPIDE [Concomitant]
     Route: 048
     Dates: start: 20100420
  4. SHAKUYAKU-KANZO-TO [Concomitant]
     Route: 048
     Dates: start: 20050704
  5. PREDNISOLONE [Concomitant]
     Route: 048
     Dates: start: 20110128
  6. SENNOSIDE [Concomitant]
     Route: 048
     Dates: start: 20111216
  7. ARTIST [Concomitant]
     Route: 048
     Dates: start: 20091106
  8. OMEPRAZOLE [Concomitant]
     Route: 048
     Dates: start: 20091113
  9. LASIX [Concomitant]
     Route: 048
     Dates: start: 20030709, end: 20120429
  10. AMLODIPINE [Concomitant]
     Route: 048
     Dates: start: 20081218
  11. ZOPICLONE [Concomitant]
     Route: 048
     Dates: start: 20120705
  12. ACTEMRA [Suspect]
     Indication: RHEUMATOID ARTHRITIS
     Route: 041
     Dates: start: 20120622
  13. KENTAN [Concomitant]
     Route: 048
     Dates: start: 20100420

REACTIONS (4)
  - PNEUMONIA [None]
  - PURPURA [None]
  - PULMONARY ALVEOLAR HAEMORRHAGE [None]
  - BLISTER [None]
